FAERS Safety Report 4760163-5 (Version None)
Quarter: 2005Q3

REPORT INFORMATION
  Report Type: 
  Country: None (occurrence: None)
  Receive Date: 20050831
  Receipt Date: 20050811
  Transmission Date: 20060218
  Serious: Yes (Disabling)
  Sender: FDA-Public Use
  Company Number: US_0507120434

PATIENT
  Age: 57 Year
  Sex: Male
  Weight: 106 kg

DRUGS (4)
  1. TADALAFIL [Suspect]
     Indication: ERECTILE DYSFUNCTION
     Dosage: 20 MG AS NEEDED
     Dates: start: 20040601
  2. LEXAPRO [Concomitant]
  3. ELAVIL [Concomitant]
  4. LEVITRA [Concomitant]

REACTIONS (7)
  - BLINDNESS UNILATERAL [None]
  - HEADACHE [None]
  - HYPERTENSION [None]
  - OPTIC ATROPHY [None]
  - OPTIC ISCHAEMIC NEUROPATHY [None]
  - TENDONITIS [None]
  - THERAPY NON-RESPONDER [None]
